FAERS Safety Report 17825860 (Version 1)
Quarter: 2020Q2

REPORT INFORMATION
  Report Type: Spontaneous
  Country: HR (occurrence: HR)
  Receive Date: 20200526
  Receipt Date: 20200526
  Transmission Date: 20200714
  Serious: Yes (Other)
  Sender: FDA-Public Use
  Company Number: HR-PFIZER INC-2020206013

PATIENT
  Age: 18 Year
  Sex: Female

DRUGS (2)
  1. MISAR [ALPRAZOLAM] [Suspect]
     Active Substance: ALPRAZOLAM
     Dosage: 1 DF, 1X/DAY
     Route: 048
     Dates: start: 20200127, end: 20200127
  2. SERTRALINE HCL [Suspect]
     Active Substance: SERTRALINE HYDROCHLORIDE
     Dosage: 1 (UNSPECIFIED PHARMACEUTICAL FORM), 1X/DAY
     Route: 048
     Dates: start: 20200127, end: 20200127

REACTIONS (1)
  - Suicide attempt [Unknown]

NARRATIVE: CASE EVENT DATE: 20200127
